FAERS Safety Report 7040250-1 (Version None)
Quarter: 2010Q4

REPORT INFORMATION
  Report Type: 
  Country: None (occurrence: None)
  Receive Date: 20101012
  Receipt Date: 20101005
  Transmission Date: 20110411
  Serious: Yes (Other)
  Sender: FDA-Public Use
  Company Number: US-BAYER-201021450BCC

PATIENT
  Age: 33 Year
  Sex: Female
  Weight: 91 kg

DRUGS (3)
  1. BRONKAID [Suspect]
     Indication: SUICIDE ATTEMPT
     Route: 048
     Dates: start: 20101005
  2. PAXIL [Concomitant]
  3. LAMICTAL [Concomitant]

REACTIONS (8)
  - ANXIETY [None]
  - HYPERTENSION [None]
  - INCORRECT DOSE ADMINISTERED [None]
  - IRRITABILITY [None]
  - MUSCLE TWITCHING [None]
  - SOMNOLENCE [None]
  - SUICIDE ATTEMPT [None]
  - TACHYCARDIA [None]
